FAERS Safety Report 7000093-1 (Version None)
Quarter: 2010Q3

REPORT INFORMATION
  Report Type: 
  Country: None (occurrence: None)
  Receive Date: 20100920
  Receipt Date: 20100910
  Transmission Date: 20110219
  Serious: Yes (Hospitalization, Other)
  Sender: FDA-Public Use
  Company Number: JP-ELI_LILLY_AND_COMPANY-JP201007000029

PATIENT
  Age: 66 Year
  Sex: Male
  Weight: 46.8 kg

DRUGS (17)
  1. PEMETREXED [Suspect]
     Indication: LUNG ADENOCARCINOMA STAGE IV
     Dosage: 775 MG, OTHER
     Route: 042
     Dates: start: 20091201, end: 20091201
  2. PEMETREXED [Suspect]
     Dosage: 744 MG, OTHER
     Route: 042
     Dates: start: 20091224, end: 20091224
  3. PEMETREXED [Suspect]
     Dosage: 740 MG, OTHER
     Route: 042
     Dates: start: 20100115, end: 20100205
  4. GRANISETRON HCL [Concomitant]
     Route: 042
     Dates: start: 20091201, end: 20100205
  5. DEXART [Concomitant]
     Route: 042
     Dates: start: 20100115, end: 20100205
  6. PANVITAN [Concomitant]
     Dosage: 1 G, DAILY (1/D)
     Route: 048
     Dates: start: 20091118, end: 20100324
  7. HYDROXOCOBALAMINE [Concomitant]
     Dosage: 1 MG, UNK
     Route: 030
     Dates: start: 20091118, end: 20100122
  8. GASTER D [Concomitant]
     Indication: GASTRITIS
     Route: 048
  9. DEPAS [Concomitant]
     Indication: INSOMNIA
     Route: 048
  10. MAGMITT [Concomitant]
     Indication: CONSTIPATION
     Route: 048
  11. PURSENNID [Concomitant]
     Indication: CONSTIPATION
     Route: 048
  12. VASOLAN [Concomitant]
     Indication: HYPERTENSION
  13. SUNRYTHM [Concomitant]
     Indication: ARRHYTHMIA
  14. KAMIKIHITOU [Concomitant]
     Route: 048
  15. OXYCONTIN [Concomitant]
     Indication: CANCER PAIN
     Route: 048
     Dates: end: 20091209
  16. DUROTEP [Concomitant]
     Indication: CANCER PAIN
     Route: 062
     Dates: start: 20091209
  17. LOXONIN [Concomitant]
     Indication: CANCER PAIN
     Dates: start: 20100307

REACTIONS (2)
  - ILEUS [None]
  - LARGE INTESTINE CARCINOMA [None]
